FAERS Safety Report 7726778-7 (Version None)
Quarter: 2011Q3

REPORT INFORMATION
  Report Type: 
  Country: None (occurrence: None)
  Receive Date: 20110902
  Receipt Date: 20110830
  Transmission Date: 20111222
  Serious: Yes (Hospitalization)
  Sender: FDA-Public Use
  Company Number: US-GLAXOSMITHKLINE-A0941876A

PATIENT
  Age: 11 Year
  Sex: Male
  Weight: 44.5 kg

DRUGS (18)
  1. NELARABINE [Suspect]
     Indication: T-CELL TYPE ACUTE LEUKAEMIA
     Dosage: 650MGM2 CYCLIC
     Route: 042
     Dates: start: 20110802
  2. PEG-ASPARAGINASE [Suspect]
     Indication: T-CELL TYPE ACUTE LEUKAEMIA
     Route: 030
  3. AMLODIPINE [Concomitant]
  4. SODIUM CHLORIDE [Concomitant]
  5. VINCRISTINE [Suspect]
     Indication: T-CELL TYPE ACUTE LEUKAEMIA
     Dosage: 1.5MGM2 CYCLIC
     Route: 042
  6. OMEPRAZOLE [Concomitant]
  7. POTASSIUM [Concomitant]
  8. CYCLOPHOSPHAMIDE [Suspect]
     Indication: T-CELL TYPE ACUTE LEUKAEMIA
     Dosage: 1000MGM2 CYCLIC
     Route: 042
  9. LEVETIRACETAM [Concomitant]
  10. MIDAZOLAM HCL [Concomitant]
  11. TRIMETHOPRIM [Concomitant]
  12. CYTARABINE [Suspect]
     Indication: T-CELL TYPE ACUTE LEUKAEMIA
     Dosage: 75MGM2 CYCLIC
     Route: 042
  13. MERCAPTOPURINE [Suspect]
     Indication: T-CELL TYPE ACUTE LEUKAEMIA
     Dosage: 60MGM2 CYCLIC
     Route: 048
  14. RADIATION [Suspect]
     Indication: T-CELL TYPE ACUTE LEUKAEMIA
     Route: 061
  15. CLOTRIMAZOLE [Concomitant]
  16. NORMODYNE [Concomitant]
  17. METHOTREXATE [Suspect]
     Indication: T-CELL TYPE ACUTE LEUKAEMIA
     Route: 037
  18. ERGOCALCIFEROL [Concomitant]

REACTIONS (1)
  - RHABDOMYOLYSIS [None]
